FAERS Safety Report 19613652 (Version 2)
Quarter: 2021Q3

REPORT INFORMATION
  Report Type: Spontaneous
  Country: US (occurrence: US)
  Receive Date: 20210727
  Receipt Date: 20210813
  Transmission Date: 20211014
  Serious: Yes (Other)
  Sender: FDA-Public Use
  Company Number: US-SUNOVION-2021SUN002735

PATIENT
  Age: 40 Year
  Sex: Male

DRUGS (1)
  1. LATUDA [Suspect]
     Active Substance: LURASIDONE HYDROCHLORIDE
     Indication: SCHIZOPHRENIA
     Dosage: 10 MG, QD
     Route: 048

REACTIONS (6)
  - Underdose [Unknown]
  - Brain neoplasm [Unknown]
  - Feeling abnormal [Unknown]
  - Initial insomnia [Not Recovered/Not Resolved]
  - Pituitary gland operation [Unknown]
  - Restlessness [Not Recovered/Not Resolved]
